FAERS Safety Report 6853815-4 (Version None)
Quarter: 2010Q3

REPORT INFORMATION
  Report Type: 
  Country: None (occurrence: None)
  Receive Date: 20100717
  Receipt Date: 20071210
  Transmission Date: 20110219
  Serious: Yes (Other)
  Sender: FDA-Public Use
  Company Number: US-PFIZER INC-2007108494

PATIENT
  Age: 52 Year
  Sex: Female

DRUGS (8)
  1. CHANTIX [Suspect]
     Indication: PRODUCT USED FOR UNKNOWN INDICATION
     Dosage: 0.5MG TABLET QD PO
     Route: 048
  2. ZETIA [Concomitant]
  3. LORAZEPAM [Concomitant]
  4. NAPROXEN [Concomitant]
  5. LAMICTAL [Concomitant]
  6. RISPERDAL [Concomitant]
  7. CONSTAN [Concomitant]
  8. AMITRIPTYLINE HYDROCHLORIDE [Concomitant]

REACTIONS (1)
  - RASH [None]
